FAERS Safety Report 25019999 (Version 1)
Quarter: 2025Q1

REPORT INFORMATION
  Report Type: Spontaneous
  Country: US (occurrence: US)
  Receive Date: 20250227
  Receipt Date: 20250227
  Transmission Date: 20250408
  Serious: No
  Sender: LNK INTERNATIONAL, INC.
  Company Number: US-LNK INTERNATIONAL, INC.-2171927

PATIENT
  Sex: Female

DRUGS (2)
  1. NIGHTTIME SLEEP AID (DOXYLAMINE SUCCINATE) [Suspect]
     Active Substance: DOXYLAMINE SUCCINATE
     Indication: Initial insomnia
  2. METOPROLOL [Concomitant]
     Active Substance: METOPROLOL

REACTIONS (2)
  - Drug ineffective [Unknown]
  - Somnolence [Unknown]
